FAERS Safety Report 4901555-0 (Version None)
Quarter: 2006Q1

REPORT INFORMATION
  Report Type: 
  Country: None (occurrence: None)
  Receive Date: 20060206
  Receipt Date: 20050208
  Transmission Date: 20060701
  Serious: Yes (Other)
  Sender: FDA-Public Use
  Company Number: US-BRISTOL-MYERS SQUIBB COMPANY-12852844

PATIENT
  Age: 61 Year
  Sex: Female
  Weight: 88 kg

DRUGS (11)
  1. TAXOL [Suspect]
     Indication: BREAST CANCER
     Dates: start: 20041223
  2. BENADRYL [Concomitant]
     Indication: PREMEDICATION
  3. DECADRON PHOSPHATE [Concomitant]
     Indication: PREMEDICATION
  4. NOVOLIN 70/30 [Concomitant]
  5. COREG [Concomitant]
  6. DIOVAN HCT [Concomitant]
  7. LANOXIN [Concomitant]
  8. FOLIC ACID [Concomitant]
  9. ALTACE [Concomitant]
  10. ACIPHEX [Concomitant]
  11. DIURETIC [Concomitant]

REACTIONS (2)
  - PAIN [None]
  - VAGINAL HAEMORRHAGE [None]
